FAERS Safety Report 6423143-X (Version None)
Quarter: 2009Q4

REPORT INFORMATION
  Report Type: 
  Country: None (occurrence: None)
  Receive Date: 20091023
  Receipt Date: 20081203
  Transmission Date: 20100525
  Serious: Yes (Other)
  Sender: FDA-Public Use
  Company Number: 2008EK000217

PATIENT
  Age: 57 Year

DRUGS (1)
  1. RETAVASE [Suspect]
     Indication: PULMONARY EMBOLISM
     Dosage: 10 U; X1; IA

REACTIONS (1)
  - HAEMORRHAGE [None]
